FAERS Safety Report 9440247 (Version 1)
Quarter: 2013Q3

REPORT INFORMATION
  Report Type: Report from Study
  Country: US (occurrence: US)
  Receive Date: 20130805
  Receipt Date: 20130805
  Transmission Date: 20140515
  Serious: Yes (Hospitalization)
  Sender: FDA-Public Use
  Company Number: PHEH2013US015920

PATIENT
  Age: 40 Year
  Sex: Female
  Weight: 87.98 kg

DRUGS (1)
  1. GILENYA [Suspect]
     Indication: MULTIPLE SCLEROSIS
     Dosage: 0.5 MG, QD
     Route: 048
     Dates: start: 20130517

REACTIONS (2)
  - Gallbladder disorder [Unknown]
  - Feeling abnormal [Unknown]
